FAERS Safety Report 5059283-X (Version None)
Quarter: 2006Q3

REPORT INFORMATION
  Report Type: 
  Country: None (occurrence: None)
  Receive Date: 20060718
  Receipt Date: 20060707
  Transmission Date: 20061208
  Serious: Yes (Other)
  Sender: FDA-Public Use
  Company Number: 200612930GDS

PATIENT
  Age: 30 Year
  Sex: Male

DRUGS (1)
  1. AVELOX [Suspect]
     Indication: OTITIS MEDIA
     Dosage: 400 MG, QD,ORAL
     Route: 048

REACTIONS (2)
  - TENDONITIS [None]
  - UVEITIS [None]
